FAERS Safety Report 15202116 (Version 1)
Quarter: 2018Q3

REPORT INFORMATION
  Report Type: Spontaneous
  Country: KG (occurrence: KG)
  Receive Date: 20180726
  Receipt Date: 20180726
  Transmission Date: 20181010
  Serious: Yes (Other)
  Sender: FDA-Public Use
  Company Number: KG-JNJFOC-20180721802

PATIENT
  Age: 55 Year
  Sex: Female
  Weight: 47 kg

DRUGS (10)
  1. LEVOFLOXACIN. [Suspect]
     Active Substance: LEVOFLOXACIN
     Indication: TUBERCULOSIS
     Dosage: 750.0 UNITS UNSPECIFIED
     Route: 065
     Dates: start: 20180528, end: 20180717
  2. PARA?AMINOSALICYLIC ACID [Suspect]
     Active Substance: AMINOSALICYLIC ACID
     Indication: TUBERCULOSIS
     Dosage: 8000 UNITS UNSPECIFIED
     Route: 065
     Dates: start: 20180528, end: 20180613
  3. VITAMIN B6 [Concomitant]
     Active Substance: PYRIDOXINE HYDROCHLORIDE
     Route: 048
     Dates: start: 20180528, end: 20180717
  4. PROTHIONAMIDE [Suspect]
     Active Substance: PROTIONAMIDE
     Indication: TUBERCULOSIS
     Dosage: 500 UNITS UNSPECIFIED
     Route: 065
     Dates: start: 20180528, end: 20180717
  5. CYCLOSERINE. [Suspect]
     Active Substance: CYCLOSERINE
     Indication: TUBERCULOSIS
     Dosage: 500 UNITS UNSPECIFIED
     Route: 065
     Dates: start: 20180528, end: 20180717
  6. BEDAQUILINE [Suspect]
     Active Substance: BEDAQUILINE
     Indication: TUBERCULOSIS
     Dosage: 200 UNITS UNSPECIFIED
     Route: 048
     Dates: start: 20180627, end: 20180717
  7. CLOFAZIMINE [Suspect]
     Active Substance: CLOFAZIMINE
     Indication: TUBERCULOSIS
     Dosage: 200 UNITS UNSPECIFIED
     Route: 065
     Dates: start: 20180613, end: 20180717
  8. BEDAQUILINE [Suspect]
     Active Substance: BEDAQUILINE
     Indication: TUBERCULOSIS
     Dosage: 400 UNITS UNSPECIFIED
     Route: 048
     Dates: start: 20180613, end: 201806
  9. PYRAZINAMIDE. [Suspect]
     Active Substance: PYRAZINAMIDE
     Indication: TUBERCULOSIS
     Dosage: 1000 UNITS UNSPECIFIED
     Route: 065
     Dates: start: 20180528, end: 20180717
  10. CAPREOMYCIN [Suspect]
     Active Substance: CAPREOMYCIN
     Indication: TUBERCULOSIS
     Dosage: 750.0 UNITS UNSPECIFIED
     Route: 065
     Dates: start: 20180528, end: 20180613

REACTIONS (4)
  - Depression [Unknown]
  - Dyspepsia [Unknown]
  - Nausea [Unknown]
  - Hallucination, visual [Unknown]

NARRATIVE: CASE EVENT DATE: 201806
